FAERS Safety Report 5041816-0 (Version None)
Quarter: 2006Q2

REPORT INFORMATION
  Report Type: 
  Country: None (occurrence: None)
  Receive Date: 20060630
  Receipt Date: 20060621
  Transmission Date: 20061013
  Serious: Yes (Hospitalization)
  Sender: FDA-Public Use
  Company Number: 226547

PATIENT
  Age: 8 Year
  Sex: Female
  Weight: 30.7 kg

DRUGS (6)
  1. NUTROPIN [Suspect]
     Indication: HYPOTHALAMO-PITUITARY DISORDERS
     Dosage: 1.1 MG,
     Dates: start: 19980609
  2. ATIVAN [Concomitant]
  3. CORTEF [Concomitant]
  4. DDAVP (DESMOPRESSIN ACETATE) [Concomitant]
  5. LAMICTAL [Concomitant]
  6. SOLU-MEDROL [Concomitant]

REACTIONS (1)
  - CONVULSION [None]
